FAERS Safety Report 20074500 (Version 1)
Quarter: 2021Q4

REPORT INFORMATION
  Report Type: Spontaneous
  Country: US (occurrence: US)
  Receive Date: 20211116
  Receipt Date: 20211116
  Transmission Date: 20220303
  Serious: No
  Sender: FDA-Public Use
  Company Number: US-PFIZER INC-2021502642

PATIENT
  Age: 65 Year
  Sex: Female

DRUGS (1)
  1. IBRANCE [Suspect]
     Active Substance: PALBOCICLIB
     Indication: Breast cancer female
     Dosage: 100 MG

REACTIONS (6)
  - Dry eye [Recovering/Resolving]
  - Fatigue [Recovering/Resolving]
  - Dizziness [Unknown]
  - Eye pain [Unknown]
  - Eye inflammation [Unknown]
  - Conjunctivitis [Unknown]
